FAERS Safety Report 21364547 (Version 2)
Quarter: 2022Q4

REPORT INFORMATION
  Report Type: Spontaneous
  Country: BE (occurrence: BE)
  Receive Date: 20220922
  Receipt Date: 20221006
  Transmission Date: 20230112
  Serious: Yes (Other)
  Sender: FDA-Public Use
  Company Number: BE-NOVARTISPH-NVSC2022BE212511

PATIENT
  Sex: Female

DRUGS (2)
  1. MYCOPHENOLATE MOFETIL [Suspect]
     Active Substance: MYCOPHENOLATE MOFETIL
     Indication: IgA nephropathy
     Dosage: UNK
     Route: 065
  2. TACROLIMUS [Suspect]
     Active Substance: TACROLIMUS
     Indication: IgA nephropathy
     Dosage: UNK
     Route: 065

REACTIONS (5)
  - Nephrotic syndrome [Unknown]
  - Proteinuria [Not Recovered/Not Resolved]
  - Inflammation [Unknown]
  - Haematuria [Recovering/Resolving]
  - Therapy partial responder [Not Recovered/Not Resolved]
